FAERS Safety Report 5254741-7 (Version None)
Quarter: 2007Q1

REPORT INFORMATION
  Report Type: 
  Country: None (occurrence: None)
  Receive Date: 20070228
  Receipt Date: 20070212
  Transmission Date: 20070707
  Serious: Yes (Death)
  Sender: FDA-Public Use
  Company Number: 2007SP002714

PATIENT
  Age: 51 Year
  Sex: Male

DRUGS (2)
  1. POSACONAZOLE [Suspect]
     Indication: ZYGOMYCOSIS
     Dosage: SEE IMAGE
     Route: 048
  2. AMPHOTERICIN B [Concomitant]

REACTIONS (1)
  - STEM CELL TRANSPLANT [None]
